FAERS Safety Report 4383727-X (Version None)
Quarter: 2004Q2

REPORT INFORMATION
  Report Type: 
  Country: None (occurrence: None)
  Receive Date: 20040608
  Receipt Date: 20030807
  Transmission Date: 20050107
  Serious: Yes (Other)
  Sender: FDA-Public Use
  Company Number: 200312794BCC

PATIENT
  Age: 46 Year
  Sex: Male
  Weight: 81.6475 kg

DRUGS (1)
  1. ALEVE [Suspect]
     Dosage: 440 MG, ORAL
     Route: 048
     Dates: start: 20030726

REACTIONS (9)
  - ABDOMINAL PAIN UPPER [None]
  - ANAPHYLACTIC SHOCK [None]
  - ANXIETY [None]
  - CHEST DISCOMFORT [None]
  - DROOLING [None]
  - HYPOAESTHESIA ORAL [None]
  - PALLOR [None]
  - PRURITUS GENERALISED [None]
  - SYNCOPE [None]
